FAERS Safety Report 6173900-2 (Version None)
Quarter: 2009Q2

REPORT INFORMATION
  Report Type: 
  Country: None (occurrence: None)
  Receive Date: 20090430
  Receipt Date: 20090427
  Transmission Date: 20091009
  Serious: Yes (Death, Hospitalization)
  Sender: FDA-Public Use
  Company Number: ES-BRISTOL-MYERS SQUIBB COMPANY-14602973

PATIENT
  Age: 64 Year
  Sex: Female

DRUGS (1)
  1. IXABEPILONE [Suspect]
     Dates: end: 20090319

REACTIONS (5)
  - ASTHENIA [None]
  - DEATH [None]
  - DYSPNOEA [None]
  - GASTROINTESTINAL HAEMORRHAGE [None]
  - MALAISE [None]
